FAERS Safety Report 9241895 (Version 1)
Quarter: 2013Q2

REPORT INFORMATION
  Report Type: Spontaneous
  Country: NO (occurrence: NO)
  Receive Date: 20130419
  Receipt Date: 20130419
  Transmission Date: 20140414
  Serious: Yes (Other)
  Sender: FDA-Public Use
  Company Number: PHHY2013NO017276

PATIENT
  Sex: Female

DRUGS (7)
  1. TEGRETOL [Suspect]
     Indication: NEURALGIA
     Dosage: 100 MG, BID
     Route: 048
     Dates: start: 20130126
  2. TEGRETOL [Suspect]
     Dosage: 400 MG, BID
     Route: 048
     Dates: start: 20130204
  3. TEGRETOL [Suspect]
     Dosage: 200 MG, BID
  4. TEGRETOL [Suspect]
     Dosage: 200 MG, UNK
  5. NEURONTIN [Concomitant]
  6. LYRICA [Concomitant]
  7. TRAMADOL [Concomitant]
     Dosage: UNK

REACTIONS (8)
  - Pharyngeal oedema [Unknown]
  - Odynophagia [Unknown]
  - Dyspnoea [Unknown]
  - Lymphadenopathy [Unknown]
  - Feeling abnormal [Unknown]
  - Pyrexia [Unknown]
  - Dizziness [Unknown]
  - Nausea [Unknown]
